FAERS Safety Report 8159232-1 (Version None)
Quarter: 2012Q1

REPORT INFORMATION
  Report Type: 
  Country: None (occurrence: None)
  Receive Date: 20120103
  Receipt Date: 20111014
  Transmission Date: 20120608
  Serious: No
  Sender: FDA-Public Use
  Company Number: AE-2011-002331

PATIENT
  Sex: Male

DRUGS (3)
  1. PEGINTERFERON (PEGINTERFERON ALFA-2A) [Concomitant]
  2. RIBAVIRIN [Concomitant]
  3. INCIVEK [Suspect]
     Dosage: (3 IN 1 D), ORAL
     Route: 048
     Dates: start: 20110101

REACTIONS (5)
  - PRURITUS [None]
  - NAUSEA [None]
  - PERSONALITY CHANGE [None]
  - RASH [None]
  - DIARRHOEA [None]
